FAERS Safety Report 8852346 (Version 1)
Quarter: 2012Q4

REPORT INFORMATION
  Report Type: 
  Country: US (occurrence: US)
  Receive Date: 20121022
  Receipt Date: 20121022
  Transmission Date: 20130627
  Serious: No
  Sender: FDA-Public Use
  Company Number: US-B.I. PHARMACEUTICALS,INC./RIDGEFIELD-2012-BP-25144BP

PATIENT
  Sex: Male
  Weight: 54 kg

DRUGS (5)
  1. SPIRIVA [Suspect]
     Indication: CHRONIC OBSTRUCTIVE PULMONARY DISEASE
     Dosage: 18 mcg
     Route: 055
     Dates: start: 201204
  2. WATER PILL [Concomitant]
     Indication: CARDIAC FAILURE CONGESTIVE
     Route: 048
  3. FLOVENT [Concomitant]
     Route: 055
  4. ANTIHYPERTENSIVE [Concomitant]
     Indication: HYPERTENSION
     Route: 048
  5. ALBUTEROL [Concomitant]
     Route: 055

REACTIONS (4)
  - Dyspnoea [Not Recovered/Not Resolved]
  - Sinus congestion [Not Recovered/Not Resolved]
  - Cough [Not Recovered/Not Resolved]
  - Head discomfort [Not Recovered/Not Resolved]
